FAERS Safety Report 5523625-9 (Version None)
Quarter: 2007Q4

REPORT INFORMATION
  Report Type: 
  Country: None (occurrence: None)
  Receive Date: 20071121
  Receipt Date: 20071114
  Transmission Date: 20080405
  Serious: Yes (Death)
  Sender: FDA-Public Use
  Company Number: JP-WYE-H00994307

PATIENT
  Sex: Male
  Weight: 60 kg

DRUGS (8)
  1. MYLOTARG [Suspect]
     Indication: ACUTE MYELOID LEUKAEMIA
     Route: 041
     Dates: start: 20070821, end: 20070821
  2. GASTER [Concomitant]
     Indication: PROPHYLAXIS
     Route: 048
     Dates: start: 20050424, end: 20070826
  3. SOLU-MEDROL [Concomitant]
     Indication: PROPHYLAXIS
     Route: 041
     Dates: start: 20070821, end: 20070821
  4. HARNAL [Concomitant]
     Indication: DYSURIA
     Route: 048
     Dates: start: 20070624, end: 20070826
  5. LOXONIN [Concomitant]
     Indication: PROPHYLAXIS
     Route: 048
     Dates: start: 20070821, end: 20070821
  6. POLARAMINE [Concomitant]
     Indication: PROPHYLAXIS
     Route: 048
     Dates: start: 20070821, end: 20070821
  7. MAGNESIUM OXIDE [Concomitant]
     Indication: CONSTIPATION
     Route: 048
     Dates: start: 20070607, end: 20070826
  8. ZOLPIDEM TARTRATE [Concomitant]
     Indication: INSOMNIA
     Route: 048
     Dates: start: 20070528, end: 20070825

REACTIONS (2)
  - CEREBRAL HAEMORRHAGE [None]
  - SEPSIS [None]
